FAERS Safety Report 14469666 (Version 3)
Quarter: 2025Q1

REPORT INFORMATION
  Report Type: Spontaneous
  Country: CA (occurrence: CA)
  Receive Date: 20180131
  Receipt Date: 20250207
  Transmission Date: 20250409
  Serious: Yes (Other)
  Sender: CELLTRION
  Company Number: CA-CELLTRION INC.-2017CA017614

PATIENT

DRUGS (6)
  1. INFLECTRA [Suspect]
     Active Substance: INFLIXIMAB-DYYB
     Indication: Colitis ulcerative
     Route: 064
     Dates: start: 20170706, end: 20171012
  2. INFLECTRA [Suspect]
     Active Substance: INFLIXIMAB-DYYB
     Route: 064
     Dates: start: 20171121
  3. INFLECTRA [Suspect]
     Active Substance: INFLIXIMAB-DYYB
     Route: 064
     Dates: start: 20180116
  4. PREDNISONE [Suspect]
     Active Substance: PREDNISONE
     Route: 064
     Dates: start: 2009
  5. PREDNISONE [Suspect]
     Active Substance: PREDNISONE
     Route: 064
     Dates: start: 201710
  6. ETHINYL ESTRADIOL\NORGESTIMATE [Concomitant]
     Active Substance: ETHINYL ESTRADIOL\NORGESTIMATE
     Indication: Contraception

REACTIONS (2)
  - Maternal exposure during pregnancy [Unknown]
  - Foetal heart rate abnormal [Unknown]
